FAERS Safety Report 21169949 (Version 6)
Quarter: 2023Q1

REPORT INFORMATION
  Report Type: Other
  Country: US (occurrence: None)
  Receive Date: 20220804
  Receipt Date: 20230316
  Transmission Date: 20230418
  Serious: Yes (Other)
  Sender: FDA-Public Use
  Company Number: US-ROCHE-3133714

PATIENT
  Age: 27 Year
  Sex: Female
  Weight: 63.560 kg

DRUGS (11)
  1. OCREVUS [Suspect]
     Active Substance: OCRELIZUMAB
     Indication: Relapsing-remitting multiple sclerosis
     Route: 042
     Dates: start: 20210410
  2. OCREVUS [Suspect]
     Active Substance: OCRELIZUMAB
     Dosage: MOST RECENT INFUSION (600 MG)
     Route: 042
     Dates: start: 20220404
  3. OCREVUS [Suspect]
     Active Substance: OCRELIZUMAB
     Dosage: LAST DOSE /APR/2022
     Route: 042
     Dates: start: 20211004, end: 20220404
  4. OCREVUS [Suspect]
     Active Substance: OCRELIZUMAB
     Dosage: 1 SPLIT DOSE
     Route: 065
     Dates: start: 20230130
  5. OCREVUS [Suspect]
     Active Substance: OCRELIZUMAB
     Dosage: A SECOND SPLIT DOSE
     Route: 065
     Dates: start: 20230213
  6. OCREVUS [Suspect]
     Active Substance: OCRELIZUMAB
     Route: 042
  7. OCREVUS [Suspect]
     Active Substance: OCRELIZUMAB
     Route: 042
  8. AMOXICILLIN [Concomitant]
     Active Substance: AMOXICILLIN
     Indication: Infection
  9. ZOFRAN [Concomitant]
     Active Substance: ONDANSETRON HYDROCHLORIDE
  10. PANTOPRAZOLE [Concomitant]
     Active Substance: PANTOPRAZOLE
  11. ZITHROMAX [Concomitant]
     Active Substance: AZITHROMYCIN DIHYDRATE

REACTIONS (13)
  - JC polyomavirus test positive [Unknown]
  - Maternal exposure before pregnancy [Unknown]
  - Nasopharyngitis [Recovered/Resolved]
  - Infection [Unknown]
  - Limb discomfort [Not Recovered/Not Resolved]
  - Muscle spasms [Unknown]
  - Neuralgia [Unknown]
  - Asthenia [Unknown]
  - Arthralgia [Unknown]
  - Bruxism [Unknown]
  - Alopecia [Unknown]
  - Eye pain [Unknown]
  - Fatigue [Unknown]

NARRATIVE: CASE EVENT DATE: 20210915
